FAERS Safety Report 7053314 (Version 3)
Quarter: 2013Q3

REPORT INFORMATION
  Report Type: Spontaneous
  Country: US (occurrence: US)
  Receive Date: 20090717
  Receipt Date: 20130919
  Transmission Date: 20140515
  Serious: Yes (Other)
  Sender: FDA-Public Use
  Company Number: US-ROCHE-634740

PATIENT
  Age: 70 Year
  Sex: Female

DRUGS (15)
  1. BONIVA [Suspect]
     Indication: OSTEOPOROSIS
     Route: 048
     Dates: start: 200503, end: 20061215
  2. FOSAMAX [Suspect]
     Indication: OSTEOPOROSIS
     Route: 048
     Dates: start: 200102, end: 20050308
  3. LEXAPRO [Concomitant]
     Route: 065
  4. PREMARIN [Concomitant]
     Route: 065
  5. ENALAPRIL MALEATE [Concomitant]
     Route: 065
  6. BETAMETHASONE/CLOTRIMAZOLE [Concomitant]
     Route: 065
  7. PENICILLIN VK [Concomitant]
     Route: 065
  8. IBUPROFEN [Concomitant]
     Route: 065
  9. ALPRAZOLAM [Concomitant]
     Route: 065
  10. TRILYTE [Concomitant]
     Route: 065
  11. NITROFURANTOIN MACRO [Concomitant]
     Route: 065
  12. LEVAQUIN [Concomitant]
     Route: 065
  13. SULFAMETHOXAZOLE/TRIMETHOPRIM [Concomitant]
     Route: 065
  14. CIPROFLOXACIN [Concomitant]
     Route: 065
  15. CEPHALEXIN [Concomitant]
     Route: 065

REACTIONS (8)
  - Osteonecrosis of jaw [Unknown]
  - Depression [Unknown]
  - Dental caries [Unknown]
  - Tooth loss [Unknown]
  - Anxiety [Unknown]
  - Cystitis [Unknown]
  - Hypothyroidism [Unknown]
  - Blood cholesterol increased [Unknown]
